FAERS Safety Report 4451844-1 (Version None)
Quarter: 2004Q3

REPORT INFORMATION
  Report Type: 
  Country: None (occurrence: None)
  Receive Date: 20040915
  Receipt Date: 20040915
  Transmission Date: 20050211
  Serious: Yes (Other)
  Sender: FDA-Public Use
  Company Number: None

PATIENT
  Age: 18 Year
  Sex: Female
  Weight: 49.4421 kg

DRUGS (2)
  1. TOPAMAX [Suspect]
     Indication: MIGRAINE
     Dosage: 1-100 MG AT NIGHT ORAL
     Route: 048
     Dates: start: 20040301, end: 20040914
  2. TOPAMAX [Suspect]
     Dosage: 3 - 25 MG AT NIGHT ORAL
     Route: 048
     Dates: start: 20040809, end: 20040907

REACTIONS (4)
  - AURA [None]
  - DISTURBANCE IN ATTENTION [None]
  - EYE PAIN [None]
  - VISION BLURRED [None]
